FAERS Safety Report 4313485-6 (Version None)
Quarter: 2004Q1

REPORT INFORMATION
  Report Type: 
  Country: None (occurrence: None)
  Receive Date: 20040304
  Receipt Date: 20040217
  Transmission Date: 20041129
  Serious: Yes (Hospitalization)
  Sender: FDA-Public Use
  Company Number: 192783

PATIENT
  Age: 57 Year
  Sex: Male
  Weight: 90.2658 kg

DRUGS (1)
  1. AVONEX [Suspect]
     Indication: MULTIPLE SCLEROSIS
     Dates: end: 20040201

REACTIONS (3)
  - BACTERIAL INFECTION [None]
  - GASTRIC INFECTION [None]
  - THROMBOSIS [None]
